FAERS Safety Report 11884474 (Version 1)
Quarter: 2015Q4

REPORT INFORMATION
  Report Type: Spontaneous
  Country: US (occurrence: None)
  Receive Date: 20151231
  Receipt Date: 20151231
  Transmission Date: 20160305
  Serious: Yes (Other)
  Sender: FDA-Public Use
  Company Number: None

PATIENT
  Age: 26 Year
  Sex: Female
  Weight: 143.34 kg

DRUGS (1)
  1. ARIPIPRAZOLE 15 MG [Suspect]
     Active Substance: ARIPIPRAZOLE
     Indication: SCHIZOAFFECTIVE DISORDER BIPOLAR TYPE
     Dosage: 1 PILL
     Route: 048
     Dates: start: 20140101, end: 20140501

REACTIONS (1)
  - Breast enlargement [None]

NARRATIVE: CASE EVENT DATE: 20150501
